FAERS Safety Report 4405396-2 (Version None)
Quarter: 2004Q3

REPORT INFORMATION
  Report Type: 
  Country: None (occurrence: None)
  Receive Date: 20040723
  Receipt Date: 20030806
  Transmission Date: 20050211
  Serious: No
  Sender: FDA-Public Use
  Company Number: US-GLAXOSMITHKLINE-A0419768A

PATIENT
  Age: 76 Year
  Sex: Female

DRUGS (3)
  1. AVANDIA [Suspect]
     Route: 048
     Dates: start: 20030701
  2. GLIPIZIDE [Concomitant]
  3. ATENOLOL [Concomitant]

REACTIONS (5)
  - ABDOMINAL PAIN UPPER [None]
  - FREQUENT BOWEL MOVEMENTS [None]
  - HEADACHE [None]
  - NECK PAIN [None]
  - VISION BLURRED [None]
